FAERS Safety Report 9444018 (Version 1)
Quarter: 2013Q3

REPORT INFORMATION
  Report Type: Spontaneous
  Country: US (occurrence: US)
  Receive Date: 20130807
  Receipt Date: 20130807
  Transmission Date: 20140515
  Serious: No
  Sender: FDA-Public Use
  Company Number: US-009507513-1308USA001805

PATIENT
  Sex: Male
  Weight: 111.11 kg

DRUGS (2)
  1. ZOCOR [Suspect]
     Route: 048
  2. LIPITOR [Suspect]

REACTIONS (1)
  - Joint swelling [Unknown]
